FAERS Safety Report 9467500 (Version 1)
Quarter: 2013Q3

REPORT INFORMATION
  Report Type: Spontaneous
  Country: FR (occurrence: FR)
  Receive Date: 20130821
  Receipt Date: 20130821
  Transmission Date: 20140515
  Serious: Yes (Hospitalization)
  Sender: FDA-Public Use
  Company Number: FR-JNJFOC-20130808020

PATIENT
  Age: 80 Year
  Sex: Male

DRUGS (2)
  1. XARELTO [Suspect]
     Indication: CEREBROVASCULAR ACCIDENT PROPHYLAXIS
     Route: 048
     Dates: start: 20121107, end: 20130723
  2. XARELTO [Suspect]
     Indication: ARRHYTHMIA SUPRAVENTRICULAR
     Route: 048
     Dates: start: 20121107, end: 20130723

REACTIONS (2)
  - Pulmonary embolism [Recovered/Resolved]
  - Drug ineffective [Recovered/Resolved]
